FAERS Safety Report 5855082-7 (Version None)
Quarter: 2008Q3

REPORT INFORMATION
  Report Type: 
  Country: None (occurrence: None)
  Receive Date: 20080822
  Receipt Date: 20080624
  Transmission Date: 20090109
  Serious: No
  Sender: FDA-Public Use
  Company Number: US-ABBOTT-08P-163-0459550-00

PATIENT
  Sex: Female
  Weight: 60.382 kg

DRUGS (11)
  1. SYNTHROID [Suspect]
     Indication: HYPOTHYROIDISM
     Route: 048
     Dates: start: 20070315, end: 20071010
  2. GENERIC LEVOTHYROXINE SODIUM [Suspect]
     Indication: HYPOTHYROIDISM
     Route: 048
     Dates: start: 20000101, end: 20061001
  3. GENERIC LEVOTHYROXINE SODIUM [Suspect]
     Route: 048
     Dates: start: 20061001, end: 20061201
  4. GENERIC LEVOTHYROXINE SODIUM [Suspect]
     Route: 048
     Dates: start: 20061201, end: 20070107
  5. GENERIC LEVOTHYROXINE SODIUM [Suspect]
     Route: 048
  6. GENERIC LEVOTHYROXINE SODIUM [Suspect]
     Dosage: 25MCG DAILY, WITH 25MCG EVERY OTHER DAY
     Route: 048
     Dates: start: 20071011, end: 20071206
  7. GENERIC LEVOTHYROXINE SODIUM [Suspect]
     Route: 048
     Dates: start: 20071207
  8. CENTRUM [Concomitant]
     Indication: VITAMIN SUPPLEMENTATION
     Route: 048
  9. CITRACAL WITH VITAMIN D [Concomitant]
     Indication: MINERAL SUPPLEMENTATION
     Route: 048
  10. MAGNESIUM SULFATE [Concomitant]
     Indication: MINERAL SUPPLEMENTATION
     Route: 048
  11. CITRACAL WITH VITAMIN D [Concomitant]
     Indication: VITAMIN SUPPLEMENTATION
     Route: 048

REACTIONS (20)
  - ABDOMINAL PAIN UPPER [None]
  - BLOOD THYROID STIMULATING HORMONE ABNORMAL [None]
  - BURNING SENSATION [None]
  - CRYING [None]
  - DIARRHOEA [None]
  - DRY MOUTH [None]
  - ERYTHEMA [None]
  - FEAR [None]
  - HEARING IMPAIRED [None]
  - HYPERSENSITIVITY [None]
  - LIMB DISCOMFORT [None]
  - NAUSEA [None]
  - NEUROPATHY PERIPHERAL [None]
  - PALMAR ERYTHEMA [None]
  - PALPITATIONS [None]
  - SINUS DISORDER [None]
  - SUICIDAL IDEATION [None]
  - TREMOR [None]
  - UNEVALUABLE EVENT [None]
  - WEIGHT DECREASED [None]
